FAERS Safety Report 6540563-3 (Version None)
Quarter: 2010Q1

REPORT INFORMATION
  Report Type: 
  Country: None (occurrence: None)
  Receive Date: 20100118
  Receipt Date: 20100107
  Transmission Date: 20100710
  Serious: Yes (Death, Other)
  Sender: FDA-Public Use
  Company Number: US-TEVA-220031USA

PATIENT
  Sex: Male

DRUGS (2)
  1. CLARAVIS [Suspect]
     Indication: BRAIN NEOPLASM MALIGNANT
     Route: 048
  2. CLARAVIS [Suspect]
     Indication: METASTASES TO MENINGES

REACTIONS (3)
  - BRAIN NEOPLASM MALIGNANT [None]
  - METASTASES TO MENINGES [None]
  - OFF LABEL USE [None]
